APPROVED DRUG PRODUCT: LORAZEPAM
Active Ingredient: LORAZEPAM
Strength: 0.5MG
Dosage Form/Route: TABLET;ORAL
Application: A072555 | Product #002
Applicant: TP ANDA HOLDINGS LLC
Approved: Mar 29, 1991 | RLD: No | RS: No | Type: DISCN